APPROVED DRUG PRODUCT: DOXY-SLEEP-AID
Active Ingredient: DOXYLAMINE SUCCINATE
Strength: 25MG
Dosage Form/Route: TABLET;ORAL
Application: A070156 | Product #001
Applicant: PAR PHARMACEUTICAL INC
Approved: Jul 2, 1987 | RLD: No | RS: No | Type: DISCN